FAERS Safety Report 7756300-0 (Version None)
Quarter: 2011Q3

REPORT INFORMATION
  Report Type: 
  Country: None (occurrence: None)
  Receive Date: 20110916
  Receipt Date: 20110909
  Transmission Date: 20111222
  Serious: Yes (Hospitalization)
  Sender: FDA-Public Use
  Company Number: DE-ROCHE-769948

PATIENT
  Sex: Female
  Weight: 83 kg

DRUGS (5)
  1. DOCETAXEL [Suspect]
     Dosage: FORM: INFUSION, LAST DOSE PRIOR TO SAE: 09 MARCH 2011
     Route: 042
     Dates: start: 20110216
  2. BEVACIZUMAB [Suspect]
     Dosage: FORM: INFUSION. LAST DOSE PRIOR TO SAE: 30 MARCH 2011.
     Route: 042
     Dates: start: 20110216
  3. LEVOTHYROXINE SODIUM [Concomitant]
     Dates: start: 20030101
  4. CAPECITABINE [Suspect]
     Dosage: FREQUENCY: DAY 1 AND 14 EVERY 3 WEEKS, LAST DOSE PRIOR TO SAE: 22 MARCH 2011
     Route: 048
     Dates: start: 20110216
  5. PAROXETINE HCL [Concomitant]
     Dates: start: 20030101

REACTIONS (2)
  - GENERAL PHYSICAL HEALTH DETERIORATION [None]
  - CARDIOVASCULAR DISORDER [None]
